FAERS Safety Report 11533382 (Version 2)
Quarter: 2015Q3

REPORT INFORMATION
  Report Type: Report from Study
  Country: DE (occurrence: DE)
  Receive Date: 20150921
  Receipt Date: 20150928
  Transmission Date: 20151125
  Serious: Yes (Hospitalization)
  Sender: FDA-Public Use
  Company Number: DE-ABBVIE-15P-062-1466383-00

PATIENT
  Sex: Female

DRUGS (1)
  1. DUODOPA [Suspect]
     Active Substance: CARBIDOPA\LEVODOPA
     Indication: PARKINSON^S DISEASE
     Dosage: MD 9 ML, CRD 4.9 ML/H, ED 2 ML
     Route: 050
     Dates: start: 20150817

REACTIONS (1)
  - Enterobacter infection [Not Recovered/Not Resolved]
